FAERS Safety Report 24315170 (Version 1)
Quarter: 2024Q3

REPORT INFORMATION
  Report Type: Spontaneous
  Country: US (occurrence: US)
  Receive Date: 20240913
  Receipt Date: 20240913
  Transmission Date: 20241017
  Serious: Yes (Other)
  Sender: BRISTOL MYERS SQUIBB
  Company Number: US-BRISTOL-MYERS SQUIBB COMPANY-2024-144851

PATIENT
  Age: 76 Year
  Sex: Female
  Weight: 91 kg

DRUGS (2)
  1. ELIQUIS [Suspect]
     Active Substance: APIXABAN
     Indication: Thrombosis
     Route: 048
     Dates: start: 2018
  2. XARELTO [Concomitant]
     Active Substance: RIVAROXABAN
     Indication: Product used for unknown indication

REACTIONS (4)
  - Aortic valve disease [Unknown]
  - Cerebrovascular accident [Unknown]
  - Memory impairment [Unknown]
  - Speech disorder [Unknown]

NARRATIVE: CASE EVENT DATE: 20240814
